FAERS Safety Report 7503108-7 (Version None)
Quarter: 2011Q2

REPORT INFORMATION
  Report Type: 
  Country: None (occurrence: None)
  Receive Date: 20110524
  Receipt Date: 20110524
  Transmission Date: 20111010
  Serious: Yes (Life-Threatening, Hospitalization)
  Sender: FDA-Public Use
  Company Number: None

PATIENT
  Age: 73 Year
  Sex: Female
  Weight: 91.173 kg

DRUGS (1)
  1. PROLIA [Suspect]
     Indication: BREAST CANCER
     Dosage: 120MG ONCE SQ
     Route: 058
     Dates: start: 20110506

REACTIONS (1)
  - BLOOD CALCIUM DECREASED [None]
